FAERS Safety Report 5224317-6 (Version None)
Quarter: 2007Q1

REPORT INFORMATION
  Report Type: 
  Country: None (occurrence: None)
  Receive Date: 20070130
  Receipt Date: 20070124
  Transmission Date: 20070707
  Serious: Yes (Hospitalization)
  Sender: FDA-Public Use
  Company Number: US-BOEHRINGER INGELHEIM PHARMACEUTICALS, INC.-2006-BP-14310BP

PATIENT
  Sex: Female

DRUGS (8)
  1. MOBIC [Suspect]
     Indication: SCIATICA
     Route: 048
     Dates: start: 20030101, end: 20060928
  2. MOBIC [Suspect]
     Indication: ARTHRALGIA
  3. MOBIC [Suspect]
     Indication: INFLAMMATION
  4. NEXIUM [Concomitant]
  5. ESTRATEST [Concomitant]
  6. ATENOLOL [Concomitant]
     Indication: HEART RATE IRREGULAR
  7. ASPIRIN [Concomitant]
  8. PROVERA [Concomitant]

REACTIONS (6)
  - BLOOD UREA INCREASED [None]
  - MUSCULOSKELETAL PAIN [None]
  - MYOCARDIAL INFARCTION [None]
  - NAUSEA [None]
  - NECK PAIN [None]
  - VENTRICULAR TACHYCARDIA [None]
